FAERS Safety Report 10903443 (Version 1)
Quarter: 2015Q1

REPORT INFORMATION
  Report Type: Spontaneous
  Country: US (occurrence: None)
  Receive Date: 20150304
  Receipt Date: 20150304
  Transmission Date: 20150721
  Serious: Yes (Hospitalization)
  Sender: FDA-Public Use
  Company Number: 2015HINLIT0205

PATIENT
  Age: 66 Year
  Sex: Male

DRUGS (5)
  1. LITHIUM [Suspect]
     Active Substance: LITHIUM CARBONATE
     Indication: SCHIZOAFFECTIVE DISORDER
  2. DIVALPROEX [Concomitant]
     Active Substance: DIVALPROEX SODIUM
  3. RISPERIDONE. [Concomitant]
     Active Substance: RISPERIDONE
  4. HALOPERIDOL. [Concomitant]
     Active Substance: HALOPERIDOL
  5. OLANZAPINE. [Concomitant]
     Active Substance: OLANZAPINE

REACTIONS (5)
  - Hypercalcaemia [None]
  - Hyperparathyroidism primary [None]
  - Parathyroid tumour benign [None]
  - Osteopenia [None]
  - Vitamin D decreased [None]
